FAERS Safety Report 6171851-0 (Version None)
Quarter: 2009Q2

REPORT INFORMATION
  Report Type: 
  Country: None (occurrence: None)
  Receive Date: 20090429
  Receipt Date: 20090414
  Transmission Date: 20091009
  Serious: Yes (Hospitalization, Other)
  Sender: FDA-Public Use
  Company Number: US-ROCHE-609040

PATIENT
  Sex: Female
  Weight: 54.9 kg

DRUGS (6)
  1. XELODA [Suspect]
     Route: 048
     Dates: start: 20081029
  2. XELODA [Suspect]
     Dosage: 2 WEEKS ON 1 WEEK OFF
     Route: 048
     Dates: start: 20081220
  3. XELODA [Suspect]
     Dosage: FOR SEVEN DAYS
     Route: 048
     Dates: start: 20090201, end: 20090201
  4. LEXAPRO [Concomitant]
     Dosage: DOSAGE: 20 MG IN AM
  5. SURMONTIL [Concomitant]
     Dosage: DOSAGE: 37.5 MG AT NIGHT
  6. CELEBREX [Concomitant]

REACTIONS (8)
  - ANOREXIA [None]
  - DEHYDRATION [None]
  - DISEASE PROGRESSION [None]
  - FATIGUE [None]
  - HYPERCALCAEMIA [None]
  - NAUSEA [None]
  - NIGHT SWEATS [None]
  - VOMITING [None]
